FAERS Safety Report 14946762 (Version 1)
Quarter: 2018Q2

REPORT INFORMATION
  Report Type: Spontaneous
  Country: US (occurrence: US)
  Receive Date: 20180508
  Receipt Date: 20180508
  Transmission Date: 20180711
  Serious: No
  Sender: FDA-Public Use
  Company Number: None

PATIENT
  Age: 66 Year
  Sex: Female

DRUGS (1)
  1. DAPTOMYCIN 375 MG VIDARA [Suspect]
     Active Substance: DAPTOMYCIN
     Indication: OSTEOMYELITIS
     Dosage: 375MG Q24H IV
     Route: 042
     Dates: start: 20180315, end: 20180315

REACTIONS (3)
  - Pyrexia [None]
  - Chills [None]
  - Tremor [None]

NARRATIVE: CASE EVENT DATE: 20180315
